FAERS Safety Report 4318612-2 (Version None)
Quarter: 2004Q1

REPORT INFORMATION
  Report Type: 
  Country: None (occurrence: None)
  Receive Date: 20040316
  Receipt Date: 20040316
  Transmission Date: 20041129
  Serious: No
  Sender: FDA-Public Use
  Company Number: None

PATIENT
  Age: 52 Year
  Sex: Female

DRUGS (1)
  1. LEXAPRO [Suspect]
     Indication: DEPRESSION
     Dosage: 5 MG OD HS
     Dates: start: 20031210, end: 20040224

REACTIONS (4)
  - DRUG INTOLERANCE [None]
  - FATIGUE [None]
  - NAUSEA [None]
  - NERVOUS SYSTEM DISORDER [None]
